FAERS Safety Report 6673631-6 (Version None)
Quarter: 2010Q1

REPORT INFORMATION
  Report Type: 
  Country: None (occurrence: None)
  Receive Date: 20100329
  Receipt Date: 20090926
  Transmission Date: 20100710
  Serious: Yes (Other)
  Sender: FDA-Public Use
  Company Number: 2009226977

PATIENT
  Age: 20 Year
  Sex: Female

DRUGS (2)
  1. GEODON [Suspect]
     Dosage: 80 MG
     Dates: start: 20090501
  2. PLAQUENIL [Concomitant]

REACTIONS (1)
  - LOSS OF CONSCIOUSNESS [None]
